FAERS Safety Report 17210823 (Version 1)
Quarter: 2019Q4

REPORT INFORMATION
  Report Type: Other
  Country: JP (occurrence: JP)
  Receive Date: 20191227
  Receipt Date: 20191227
  Transmission Date: 20200122
  Serious: Yes (Life-Threatening, Hospitalization)
  Sender: FDA-Public Use
  Company Number: JP-NOSTRUM LABORATORIES, INC.-2078259

PATIENT
  Age: 80 Year
  Sex: Female

DRUGS (1)
  1. CLARITHROMYCIN EXTENDED RELEASE [Suspect]
     Active Substance: CLARITHROMYCIN
     Indication: MYCOBACTERIUM TEST POSITIVE
     Route: 048

REACTIONS (1)
  - Eosinophilic pneumonia [Recovered/Resolved]
